FAERS Safety Report 7818432-8 (Version None)
Quarter: 2011Q4

REPORT INFORMATION
  Report Type: 
  Country: None (occurrence: None)
  Receive Date: 20111017
  Receipt Date: 20111010
  Transmission Date: 20120403
  Serious: Yes (Other)
  Sender: FDA-Public Use
  Company Number: US-BAYER-2011-097622

PATIENT
  Sex: Female

DRUGS (2)
  1. CHANTIX [Suspect]
     Dosage: UNK
     Dates: start: 20110101
  2. CIPROFLOXACIN [Suspect]

REACTIONS (4)
  - ABNORMAL DREAMS [None]
  - RASH [None]
  - NAUSEA [None]
  - IRRITABILITY [None]
